FAERS Safety Report 13745391 (Version 3)
Quarter: 2017Q3

REPORT INFORMATION
  Report Type: Report from Study
  Country: DE (occurrence: DE)
  Receive Date: 20170712
  Receipt Date: 20170811
  Transmission Date: 20171127
  Serious: Yes (Other)
  Sender: FDA-Public Use
  Company Number: DE-BAYER-2017-129947

PATIENT
  Sex: Male

DRUGS (2)
  1. BETAFERON [Suspect]
     Active Substance: INTERFERON BETA-1B
  2. BETACONNECT [Suspect]
     Active Substance: DEVICE
     Dosage: UNK

REACTIONS (9)
  - Inflammatory marker test [Unknown]
  - Device malfunction [Unknown]
  - Swelling [Unknown]
  - Expired device used [Unknown]
  - Pain [Unknown]
  - Liver function test increased [Unknown]
  - Malaise [Unknown]
  - Incorrect dose administered by device [Unknown]
  - Renal function test abnormal [Unknown]
